FAERS Safety Report 25277694 (Version 1)
Quarter: 2025Q2

REPORT INFORMATION
  Report Type: Spontaneous
  Country: FR (occurrence: FR)
  Receive Date: 20250507
  Receipt Date: 20250507
  Transmission Date: 20250716
  Serious: Yes (Other)
  Sender: LEADING PHARMA
  Company Number: FR-LEADINGPHARMA-FR-2025LEALIT00097

PATIENT
  Age: 43 Year
  Sex: Female

DRUGS (8)
  1. LEUCOVORIN CALCIUM [Suspect]
     Active Substance: LEUCOVORIN CALCIUM
     Indication: Colorectal cancer metastatic
     Route: 042
     Dates: start: 202312
  2. DIETARY SUPPLEMENT\HERBALS [Suspect]
     Active Substance: DIETARY SUPPLEMENT\HERBALS
     Indication: Supplementation therapy
     Route: 065
     Dates: start: 20231219
  3. HERBALS [Suspect]
     Active Substance: HERBALS
     Indication: Supplementation therapy
     Route: 065
  4. OXALIPLATIN [Suspect]
     Active Substance: OXALIPLATIN
     Indication: Colorectal cancer metastatic
     Route: 042
     Dates: start: 202312
  5. IRINOTECAN [Suspect]
     Active Substance: IRINOTECAN
     Indication: Colorectal cancer metastatic
     Route: 042
     Dates: start: 202312
  6. FLUOROURACIL [Suspect]
     Active Substance: FLUOROURACIL
     Indication: Colorectal cancer metastatic
     Route: 042
     Dates: start: 202312
  7. CAPECITABINE [Concomitant]
     Active Substance: CAPECITABINE
     Indication: Colorectal cancer metastatic
     Route: 048
  8. CISPLATIN;CYCLOPHOSPHAMIDE;DOXORUBICIN [Concomitant]
     Indication: Colorectal cancer metastatic
     Route: 065

REACTIONS (4)
  - Hepatic cytolysis [Unknown]
  - Cholestasis [Unknown]
  - Drug interaction [Unknown]
  - Drug ineffective for unapproved indication [Unknown]

NARRATIVE: CASE EVENT DATE: 20231207
